FAERS Safety Report 13610302 (Version 1)
Quarter: 2017Q2

REPORT INFORMATION
  Report Type: Spontaneous
  Country: US (occurrence: US)
  Receive Date: 20170602
  Receipt Date: 20170602
  Transmission Date: 20170830
  Serious: No
  Sender: FDA-Public Use
  Company Number: None

PATIENT
  Age: 77 Year
  Sex: Male

DRUGS (1)
  1. REVLIMID [Suspect]
     Active Substance: LENALIDOMIDE
     Indication: PLASMA CELL MYELOMA
     Route: 048
     Dates: start: 20141024, end: 20150220

REACTIONS (8)
  - Anal incontinence [None]
  - Physical examination abnormal [None]
  - Hypophagia [None]
  - Loss of personal independence in daily activities [None]
  - Urinary incontinence [None]
  - Condition aggravated [None]
  - Urine odour abnormal [None]
  - Oedema peripheral [None]

NARRATIVE: CASE EVENT DATE: 20150220
